FAERS Safety Report 8847618 (Version 1)
Quarter: 2012Q4

REPORT INFORMATION
  Report Type: 
  Country: IE (occurrence: IE)
  Receive Date: 20121018
  Receipt Date: 20121018
  Transmission Date: 20130627
  Serious: Yes (Other)
  Sender: FDA-Public Use
  Company Number: IE-ELI_LILLY_AND_COMPANY-IE201210002149

PATIENT
  Sex: Female

DRUGS (2)
  1. ZYPREXA [Suspect]
     Indication: MAJOR DEPRESSION
     Dosage: 20 mg, qd
     Dates: start: 201205
  2. ZYPREXA [Suspect]
     Dosage: 5 mg, qd

REACTIONS (1)
  - Atrioventricular block second degree [Unknown]
